FAERS Safety Report 9956898 (Version 1)
Quarter: 2014Q1

REPORT INFORMATION
  Report Type: Report from Study
  Country: US (occurrence: US)
  Receive Date: 20140304
  Receipt Date: 20140304
  Transmission Date: 20141002
  Serious: No
  Sender: FDA-Public Use
  Company Number: US-ABBVIE-13P-163-1099345-00

PATIENT
  Age: 61 Year
  Sex: Male

DRUGS (5)
  1. HUMIRA [Suspect]
     Indication: PSORIASIS
     Dates: start: 20121103
  2. XANAX [Concomitant]
     Indication: ANXIETY DISORDER
  3. ADDERALL [Concomitant]
     Indication: ANXIETY DISORDER
  4. SEROQUEL [Concomitant]
     Indication: INSOMNIA
     Dosage: 2 AT BEDTIME
  5. CYMBALTA [Concomitant]
     Indication: ARTHRALGIA

REACTIONS (1)
  - Pruritus [Not Recovered/Not Resolved]
